FAERS Safety Report 16075506 (Version 8)
Quarter: 2023Q1

REPORT INFORMATION
  Report Type: Other
  Country: KR (occurrence: None)
  Receive Date: 20190315
  Receipt Date: 20230209
  Transmission Date: 20230417
  Serious: Yes (Death)
  Sender: FDA-Public Use
  Company Number: KR-ROCHE-2216705

PATIENT
  Age: 84 Year
  Sex: Female
  Weight: 42.05 kg

DRUGS (35)
  1. OBINUTUZUMAB [Suspect]
     Active Substance: OBINUTUZUMAB
     Indication: Chronic lymphocytic leukaemia
     Dosage: CYCLE 1 DAY 1
     Route: 042
     Dates: start: 20181115
  2. OBINUTUZUMAB [Suspect]
     Active Substance: OBINUTUZUMAB
     Dosage: CYCLE 1 DAY 2
     Route: 042
     Dates: start: 20181116
  3. OBINUTUZUMAB [Suspect]
     Active Substance: OBINUTUZUMAB
     Dosage: CYCLE 2 DAY 1
     Route: 042
     Dates: start: 20181210
  4. OBINUTUZUMAB [Suspect]
     Active Substance: OBINUTUZUMAB
     Dosage: CYCLE 3 DAY 1
     Route: 042
     Dates: start: 20190109
  5. OBINUTUZUMAB [Suspect]
     Active Substance: OBINUTUZUMAB
     Dosage: CYCLE 1 DAY 8
     Route: 042
     Dates: start: 20181122
  6. OBINUTUZUMAB [Suspect]
     Active Substance: OBINUTUZUMAB
     Dosage: CYCLE 1 DAY 15
     Route: 042
     Dates: start: 20181129
  7. CHLORAMBUCIL [Suspect]
     Active Substance: CHLORAMBUCIL
     Indication: Chronic lymphocytic leukaemia
     Dosage: CYCLE 1
     Route: 048
     Dates: start: 20181115, end: 20181115
  8. CHLORAMBUCIL [Suspect]
     Active Substance: CHLORAMBUCIL
     Dosage: CYCLE 1
     Route: 048
     Dates: start: 20181129, end: 20181129
  9. CHLORAMBUCIL [Suspect]
     Active Substance: CHLORAMBUCIL
     Dosage: CYCLE 2
     Route: 048
     Dates: start: 20181210, end: 20181210
  10. CHLORAMBUCIL [Suspect]
     Active Substance: CHLORAMBUCIL
     Dosage: CYCLE 2
     Route: 048
     Dates: start: 20181224, end: 20181224
  11. CHLORAMBUCIL [Suspect]
     Active Substance: CHLORAMBUCIL
     Dosage: CYCLE 3
     Route: 048
     Dates: start: 20190109, end: 20190109
  12. CHLORAMBUCIL [Suspect]
     Active Substance: CHLORAMBUCIL
     Dosage: CYCLE 3
     Route: 048
     Dates: start: 20190123, end: 20190123
  13. ALLOPURINOL [Concomitant]
     Active Substance: ALLOPURINOL
     Indication: Prophylaxis
     Route: 048
     Dates: start: 20181115
  14. DEXAMETHASONE SODIUM PHOSPHATE [Concomitant]
     Active Substance: DEXAMETHASONE SODIUM PHOSPHATE
     Indication: Premedication
     Dosage: 4 AMP (5 MG/1 ML)
     Route: 042
     Dates: start: 20181115
  15. CHLORPHENIRAMINE MALEATE [Concomitant]
     Active Substance: CHLORPHENIRAMINE MALEATE
     Indication: Premedication
     Dosage: 1 AMP (4 MG/2 ML)
     Route: 042
     Dates: start: 20181115
  16. TACENOL [Concomitant]
     Indication: Premedication
     Route: 048
     Dates: start: 20181115
  17. SULFAMETHOXAZOLE\TRIMETHOPRIM [Concomitant]
     Active Substance: SULFAMETHOXAZOLE\TRIMETHOPRIM
     Indication: Prophylaxis
     Route: 048
     Dates: start: 20181115
  18. GANAKHAN [Concomitant]
     Indication: Prophylaxis
     Route: 048
     Dates: start: 20181109
  19. VANCOMYCIN [Concomitant]
     Active Substance: VANCOMYCIN
     Route: 042
  20. ALDACTONE [Concomitant]
     Active Substance: SPIRONOLACTONE
     Indication: Acute kidney injury
     Route: 048
     Dates: start: 20181128, end: 20181201
  21. ALDACTONE [Concomitant]
     Active Substance: SPIRONOLACTONE
     Route: 048
     Dates: start: 20181123, end: 20181127
  22. ALDACTONE [Concomitant]
     Active Substance: SPIRONOLACTONE
     Route: 048
     Dates: start: 20181128, end: 20181210
  23. ALDACTONE [Concomitant]
     Active Substance: SPIRONOLACTONE
     Route: 048
     Dates: start: 20190219
  24. EDOXABAN TOSYLATE [Concomitant]
     Active Substance: EDOXABAN TOSYLATE
     Indication: Angina pectoris
     Route: 048
     Dates: start: 20180919, end: 20190226
  25. CRESTOR [Concomitant]
     Active Substance: ROSUVASTATIN CALCIUM
     Indication: Angina pectoris
     Route: 048
     Dates: start: 2018
  26. CHOLINE ALFOSCERATE [Concomitant]
     Active Substance: CHOLINE ALFOSCERATE
     Indication: Angina pectoris
     Route: 048
     Dates: start: 20190226, end: 20190226
  27. STILLEN [Concomitant]
     Indication: Angina pectoris
     Route: 048
     Dates: start: 201806, end: 20190221
  28. NEBISTOL [Concomitant]
     Route: 048
     Dates: start: 20190226
  29. ELROTON [Concomitant]
     Route: 048
     Dates: start: 2018, end: 20190220
  30. CRESTOR [Concomitant]
     Active Substance: ROSUVASTATIN CALCIUM
  31. ULTRACET [Concomitant]
     Active Substance: ACETAMINOPHEN\TRAMADOL HYDROCHLORIDE
     Route: 048
     Dates: start: 20181030, end: 20181210
  32. CEFAZOLIN SODIUM [Concomitant]
     Active Substance: CEFAZOLIN SODIUM
     Route: 042
     Dates: start: 20181104, end: 20181115
  33. SODIUM BICARBONATE [Concomitant]
     Active Substance: SODIUM BICARBONATE
     Dates: start: 20181115, end: 20181129
  34. ANTIBIO [Concomitant]
     Route: 048
     Dates: start: 20190221, end: 20190223
  35. VANCOMYCIN [Concomitant]
     Active Substance: VANCOMYCIN
     Dosage: 0.6 UNIT OTHER.
     Dates: start: 20181120, end: 20181201

REACTIONS (6)
  - Colon cancer [Fatal]
  - Feeling cold [Recovered/Resolved]
  - Aspartate aminotransferase increased [Unknown]
  - Wound secretion [Recovered/Resolved with Sequelae]
  - Pruritus [Recovered/Resolved]
  - Face oedema [Recovered/Resolved]

NARRATIVE: CASE EVENT DATE: 20181115
